FAERS Safety Report 9096115 (Version 13)
Quarter: 2023Q1

REPORT INFORMATION
  Report Type: Other
  Country: CA (occurrence: None)
  Receive Date: 20130207
  Receipt Date: 20230109
  Transmission Date: 20230417
  Serious: Yes (Life-Threatening, Hospitalization, Other)
  Sender: FDA-Public Use
  Company Number: CA-ROCHE-1188675

PATIENT
  Age: 53 Year
  Sex: Male
  Weight: 69.9 kg

DRUGS (16)
  1. RITUXAN [Suspect]
     Active Substance: RITUXIMAB
     Indication: Rheumatoid arthritis
     Dosage: DAY 1 AND DAY 15
     Route: 042
     Dates: start: 20090812, end: 2009
  2. RITUXAN [Suspect]
     Active Substance: RITUXIMAB
     Route: 042
     Dates: start: 20100831
  3. RITUXAN [Suspect]
     Active Substance: RITUXIMAB
     Dosage: DOSE UNKNOWN?RECEIVED RITUXAN OUTSIDE OF RPAP, DOSING DETAILS NOT PROVIDED
     Route: 042
     Dates: start: 2008
  4. ATORVASTATIN [Suspect]
     Active Substance: ATORVASTATIN
     Indication: Product used for unknown indication
     Route: 065
  5. LEVOTHYROXINE [Concomitant]
     Active Substance: LEVOTHYROXINE
  6. OMEPRAZOLE [Concomitant]
     Active Substance: OMEPRAZOLE
  7. ARAVA [Concomitant]
     Active Substance: LEFLUNOMIDE
  8. DIPHENHYDRAMINE HYDROCHLORIDE [Concomitant]
     Active Substance: DIPHENHYDRAMINE HYDROCHLORIDE
     Indication: Premedication
     Route: 048
     Dates: start: 20090831
  9. ACETAMINOPHEN [Concomitant]
     Active Substance: ACETAMINOPHEN
     Indication: Premedication
     Route: 048
     Dates: start: 20090831
  10. METHYLPREDNISOLONE [Concomitant]
     Active Substance: METHYLPREDNISOLONE
     Route: 042
     Dates: start: 20090831
  11. PREDNISONE [Concomitant]
     Active Substance: PREDNISONE
  12. KETOPROFEN [Concomitant]
     Active Substance: KETOPROFEN
  13. TYLENOL [Concomitant]
     Active Substance: ACETAMINOPHEN
     Route: 048
     Dates: start: 20090812
  14. SOLU-MEDROL [Concomitant]
     Active Substance: METHYLPREDNISOLONE SODIUM SUCCINATE
     Route: 042
     Dates: start: 20090812
  15. BENADRYL [Concomitant]
     Active Substance: DIPHENHYDRAMINE HYDROCHLORIDE
     Route: 048
     Dates: start: 20090812
  16. LOSEC [Concomitant]
     Active Substance: OMEPRAZOLE

REACTIONS (33)
  - Vitello-intestinal duct remnant [Unknown]
  - Emphysema [Unknown]
  - Infusion related reaction [Unknown]
  - Blood cholesterol increased [Not Recovered/Not Resolved]
  - Pneumonia [Unknown]
  - Myalgia [Unknown]
  - Influenza [Unknown]
  - Heart rate decreased [Unknown]
  - Rheumatoid arthritis [Not Recovered/Not Resolved]
  - Oxygen saturation decreased [Unknown]
  - Cough [Unknown]
  - Bronchitis chronic [Unknown]
  - Sleep disorder [Unknown]
  - Anxiety [Unknown]
  - Depression [Unknown]
  - Oesophagitis [Unknown]
  - Hypoacusis [Unknown]
  - Ill-defined disorder [Unknown]
  - Arthropathy [Unknown]
  - Haemoglobin decreased [Unknown]
  - Neuropathy peripheral [Unknown]
  - Hypothyroidism [Unknown]
  - Gastrooesophageal reflux disease [Unknown]
  - Type 1 diabetes mellitus [Unknown]
  - Vertigo [Unknown]
  - Presyncope [Unknown]
  - Troponin increased [Unknown]
  - Tinnitus [Unknown]
  - Dyslipidaemia [Unknown]
  - Emphysema [Unknown]
  - Joint swelling [Unknown]
  - Vomiting [Unknown]
  - Diarrhoea [Unknown]

NARRATIVE: CASE EVENT DATE: 20120701
